FAERS Safety Report 13940797 (Version 1)
Quarter: 2017Q3

REPORT INFORMATION
  Report Type: Spontaneous
  Country: US (occurrence: US)
  Receive Date: 20170906
  Receipt Date: 20170906
  Transmission Date: 20171127
  Serious: Yes (Hospitalization)
  Sender: FDA-Public Use
  Company Number: US-PFIZER INC-2017385914

PATIENT
  Age: 53 Year
  Sex: Female
  Weight: 79 kg

DRUGS (5)
  1. HYDROCHLOROTH [Concomitant]
     Active Substance: HYDROCHLOROTHIAZIDE
     Indication: DIURETIC THERAPY
     Dosage: 25 MG, 1X/DAY
  2. BABY ASPIRIN [Concomitant]
     Active Substance: ASPIRIN
     Indication: ANTICOAGULANT THERAPY
  3. HYDROCHLOROTH [Concomitant]
     Active Substance: HYDROCHLOROTHIAZIDE
     Indication: HYPERTENSION
  4. LYRICA [Suspect]
     Active Substance: PREGABALIN
     Indication: BACK PAIN
     Dosage: 150 MG, 2X/DAY
  5. BABY ASPIRIN [Concomitant]
     Active Substance: ASPIRIN
     Indication: PROPHYLAXIS
     Dosage: 80 MG, 1X/DAY

REACTIONS (1)
  - Myocardial infarction [Recovered/Resolved with Sequelae]

NARRATIVE: CASE EVENT DATE: 20170819
